FAERS Safety Report 14074421 (Version 1)
Quarter: 2017Q4

REPORT INFORMATION
  Report Type: Spontaneous
  Country: US (occurrence: None)
  Receive Date: 20171011
  Receipt Date: 20171011
  Transmission Date: 20180321
  Serious: Yes (Hospitalization)
  Sender: FDA-Public Use
  Company Number: None

PATIENT
  Age: 71 Year
  Sex: Male

DRUGS (10)
  1. OXYCOD [Concomitant]
  2. DOXYCYCLINE. [Concomitant]
     Active Substance: DOXYCYCLINE
  3. FISH OIL [Concomitant]
     Active Substance: FISH OIL
  4. PRO STAT [Concomitant]
  5. SENOKOT [Concomitant]
     Active Substance: SENNOSIDES
  6. DIOVAN [Concomitant]
     Active Substance: VALSARTAN
  7. IMATINIB 400MG [Suspect]
     Active Substance: IMATINIB
     Indication: CHRONIC MYELOID LEUKAEMIA
     Route: 048
     Dates: start: 20160220
  8. GABAPENTIN. [Concomitant]
     Active Substance: GABAPENTIN
  9. SKELAXIN [Concomitant]
     Active Substance: METAXALONE
  10. METAXALONE. [Concomitant]
     Active Substance: METAXALONE

REACTIONS (1)
  - Musculoskeletal disorder [None]
